FAERS Safety Report 16579219 (Version 1)
Quarter: 2019Q3

REPORT INFORMATION
  Report Type: Report from Study
  Country: TW (occurrence: TW)
  Receive Date: 20190716
  Receipt Date: 20190716
  Transmission Date: 20191004
  Serious: Yes (Hospitalization)
  Sender: FDA-Public Use
  Company Number: TW-PFIZER INC-2019165682

PATIENT
  Age: 61 Year
  Sex: Female

DRUGS (4)
  1. XELJANZ [Suspect]
     Active Substance: TOFACITINIB CITRATE
     Indication: RHEUMATOID ARTHRITIS
     Dosage: 5 MG, 2X/DAY (BID)
     Route: 048
     Dates: start: 20171122, end: 20190410
  2. CELECOXIB. [Concomitant]
     Active Substance: CELECOXIB
     Indication: RHEUMATOID ARTHRITIS
     Dosage: 200 MG, 1X/DAY (QD)
     Route: 048
     Dates: start: 20170927
  3. PREDNISOLONE. [Concomitant]
     Active Substance: PREDNISOLONE
     Indication: RHEUMATOID ARTHRITIS
     Dosage: 5 MG, 1X/DAY (QD)
     Route: 048
     Dates: start: 20170802
  4. ULTRACET [Concomitant]
     Active Substance: ACETAMINOPHEN\TRAMADOL HYDROCHLORIDE
     Indication: RHEUMATOID ARTHRITIS
     Dosage: [PARACETAMOL 325 MG]/[TRAMADOL HYDROCHLORIDE 37.5 MG]/1 TABLET, BID
     Route: 048
     Dates: start: 20170901

REACTIONS (1)
  - Paraspinal abscess [Recovered/Resolved]

NARRATIVE: CASE EVENT DATE: 20190409
